FAERS Safety Report 9579382 (Version 2)
Quarter: 2013Q4

REPORT INFORMATION
  Report Type: Spontaneous
  Country: US (occurrence: US)
  Receive Date: 20131001
  Receipt Date: 20131001
  Transmission Date: 20140711
  Serious: No
  Sender: FDA-Public Use
  Company Number: US-AMGEN-USASP2013012579

PATIENT
  Age: 56 Year
  Sex: Female
  Weight: 59.41 kg

DRUGS (26)
  1. ENBREL [Suspect]
     Indication: PSORIATIC ARTHROPATHY
     Dosage: 50 MG, QWK
     Route: 058
     Dates: start: 201301
  2. PRIMIDONE [Concomitant]
     Dosage: 50 MG, UNK
  3. VERAPAMIL [Concomitant]
     Dosage: 100 MG, (ER) UNK
  4. VERAPAMIL [Concomitant]
     Dosage: 180 MG, QD
     Route: 048
  5. PROTONIX [Concomitant]
     Dosage: 20 MG, UNK
  6. FOLIC ACID [Concomitant]
     Dosage: 1 MG, UNK
     Route: 048
  7. PREDNISONE [Concomitant]
     Dosage: 10 MG, UNK
  8. FLEXERIL                           /00428402/ [Concomitant]
     Dosage: 10 MG, UNK
  9. VICODIN ES [Concomitant]
     Dosage: 7.5-300
     Route: 048
  10. VICODIN ES [Concomitant]
     Dosage: 10-660 MG, 0.5/HALF
     Route: 048
  11. ASPIRIN [Concomitant]
     Dosage: 81 MG, QD
     Route: 048
  12. FISH OIL [Concomitant]
     Dosage: 1000 MG, BID
     Route: 048
  13. OMEGA PLUS 3 6 9 [Concomitant]
     Dosage: 200 MG, QD
     Route: 048
  14. VITAMIN D                          /00107901/ [Concomitant]
     Dosage: 1000 UNIT, UNK
  15. VITAMIN D                          /00107901/ [Concomitant]
     Dosage: 2000 UNIT, QD
     Route: 048
  16. MAGNESIUM [Concomitant]
     Dosage: 300 MG, UNK
  17. MAGNESIUM [Concomitant]
     Dosage: 250 MG, BID
     Route: 048
  18. SENNA                              /00142201/ [Concomitant]
     Dosage: 8.6 MG, UNK
  19. MIRALAX                            /00754501/ [Concomitant]
     Dosage: POW 3350 NF
  20. METHOTREXATE [Concomitant]
     Dosage: 0.6 UNK, QWK
     Route: 058
  21. ZYRTEC [Concomitant]
     Dosage: 10 MG, QD
     Route: 048
  22. RANITIDINE [Concomitant]
     Dosage: 150 MG, QD, PRN
     Route: 048
  23. CYCLOBENZAPRINE [Concomitant]
     Dosage: 10 MG, PRN UNK
     Route: 048
  24. MYSOLINE [Concomitant]
     Dosage: 100 MG, QHS
     Route: 048
  25. PROTONIX [Concomitant]
     Dosage: 40 MG, QD
     Route: 048
  26. AZELASTINE [Concomitant]
     Dosage: 137 MUG, SQU-2 IN THE NOSTRILS UNK

REACTIONS (7)
  - Arthralgia [Unknown]
  - Condition aggravated [Unknown]
  - Urticaria [Unknown]
  - Nausea [Unknown]
  - Hot flush [Unknown]
  - Injection site erythema [Unknown]
  - Injection site reaction [Not Recovered/Not Resolved]
